FAERS Safety Report 12428833 (Version 2)
Quarter: 2016Q2

REPORT INFORMATION
  Report Type: Report from Study
  Country: AT (occurrence: AT)
  Receive Date: 20160602
  Receipt Date: 20160624
  Transmission Date: 20160815
  Serious: Yes (Hospitalization, Other)
  Sender: FDA-Public Use
  Company Number: PHHY2016AT050108

PATIENT
  Age: 59 Year
  Sex: Female
  Weight: 117 kg

DRUGS (4)
  1. EXEMESTAN [Concomitant]
     Active Substance: EXEMESTANE
     Indication: PRODUCT USED FOR UNKNOWN INDICATION
     Dosage: 25 MG, QD
     Route: 065
     Dates: start: 20160307
  2. AROMASIN [Concomitant]
     Active Substance: EXEMESTANE
     Dosage: 25 MG, UNK
     Route: 065
  3. AROMASIN [Concomitant]
     Active Substance: EXEMESTANE
     Indication: PRODUCT USED FOR UNKNOWN INDICATION
     Dosage: UNK UNK, QD
     Route: 065
  4. AFINITOR [Suspect]
     Active Substance: EVEROLIMUS
     Indication: BREAST CANCER
     Dosage: 5 MG, QD
     Route: 065
     Dates: start: 20160307, end: 20160506

REACTIONS (29)
  - Musculoskeletal disorder [Unknown]
  - Bone swelling [Recovering/Resolving]
  - Pleurisy [Unknown]
  - Pruritus [Not Recovered/Not Resolved]
  - Malignant neoplasm progression [Unknown]
  - Stomatitis [Not Recovered/Not Resolved]
  - Cardiomyopathy [Unknown]
  - Oedema peripheral [Unknown]
  - Feeding disorder [Unknown]
  - Acne [Not Recovered/Not Resolved]
  - Aortic arteriosclerosis [Unknown]
  - Hypertensive crisis [Unknown]
  - Myocardial ischaemia [Unknown]
  - Anaphylactic reaction [Unknown]
  - Pneumonia pneumococcal [Unknown]
  - Aphthous ulcer [Unknown]
  - Hyperlipidaemia [Unknown]
  - Heart rate increased [Unknown]
  - Type I hypersensitivity [Unknown]
  - General physical health deterioration [Recovered/Resolved]
  - Pleural fibrosis [Unknown]
  - Cardiac failure [Unknown]
  - Dyspnoea [Not Recovered/Not Resolved]
  - Dyspnoea at rest [Unknown]
  - Rib fracture [Unknown]
  - Pleural effusion [Unknown]
  - Dilatation ventricular [Unknown]
  - Cardiovascular disorder [Unknown]
  - Stomatitis [Recovered/Resolved]

NARRATIVE: CASE EVENT DATE: 20160316
